FAERS Safety Report 7645545-6 (Version None)
Quarter: 2011Q3

REPORT INFORMATION
  Report Type: 
  Country: None (occurrence: None)
  Receive Date: 20110729
  Receipt Date: 20110719
  Transmission Date: 20111222
  Serious: Yes (Other)
  Sender: FDA-Public Use
  Company Number: US-ROCHE-757413

PATIENT
  Sex: Male
  Weight: 86.2 kg

DRUGS (2)
  1. ACCUTANE [Suspect]
     Dosage: START: FALL 1993 AND STOP IN 1994
     Route: 065
     Dates: start: 19930101, end: 19940101
  2. ACCUTANE [Suspect]
     Indication: SKIN DISORDER
     Route: 065
     Dates: start: 19940101, end: 19941201

REACTIONS (6)
  - INTESTINAL HAEMORRHAGE [None]
  - GASTROINTESTINAL INJURY [None]
  - ANAL FISSURE [None]
  - IRRITABLE BOWEL SYNDROME [None]
  - CROHN'S DISEASE [None]
  - INFLAMMATORY BOWEL DISEASE [None]
